FAERS Safety Report 6906507-7 (Version None)
Quarter: 2010Q3

REPORT INFORMATION
  Report Type: 
  Country: None (occurrence: None)
  Receive Date: 20100804
  Receipt Date: 20100622
  Transmission Date: 20110219
  Serious: No
  Sender: FDA-Public Use
  Company Number: US-MYLANLABS-2010S1008305

PATIENT
  Sex: Female

DRUGS (1)
  1. LAMOTRIGINE [Suspect]
     Indication: BIPOLAR II DISORDER
     Dates: start: 20100401

REACTIONS (5)
  - BIPOLAR DISORDER [None]
  - DRUG INEFFECTIVE [None]
  - FEELING ABNORMAL [None]
  - GAIT DISTURBANCE [None]
  - MEMORY IMPAIRMENT [None]
